FAERS Safety Report 5394542-2 (Version None)
Quarter: 2007Q3

REPORT INFORMATION
  Report Type: 
  Country: None (occurrence: None)
  Receive Date: 20070718
  Receipt Date: 20060613
  Transmission Date: 20080115
  Serious: Yes (Hospitalization)
  Sender: FDA-Public Use
  Company Number: 2006075630

PATIENT
  Age: 66 Year
  Sex: Female
  Weight: 108.8633 kg

DRUGS (1)
  1. CELEBREX [Suspect]
     Indication: ARTHRALGIA
     Dosage: 100 MG (100 MG, 1 IN 1 D)
     Dates: start: 20000801

REACTIONS (1)
  - CEREBROVASCULAR ACCIDENT [None]
